FAERS Safety Report 4298787-4 (Version None)
Quarter: 2004Q1

REPORT INFORMATION
  Report Type: 
  Country: None (occurrence: None)
  Receive Date: 20040126
  Receipt Date: 20031022
  Transmission Date: 20041129
  Serious: No
  Sender: FDA-Public Use
  Company Number: USA031050604

PATIENT
  Age: 6 Year
  Sex: Male
  Weight: 30 kg

DRUGS (5)
  1. STRATTERA [Suspect]
     Indication: ATTENTION DEFICIT/HYPERACTIVITY DISORDER
     Dosage: 30 MG/DAY
     Dates: start: 20031001
  2. STRATTERA [Suspect]
     Indication: AUTISM
     Dosage: 30 MG/DAY
     Dates: start: 20031001
  3. MULTIVITAMIN WITH MINERALS [Concomitant]
  4. VITAMIN C [Concomitant]
  5. CALCIUM [Concomitant]

REACTIONS (6)
  - AGGRESSION [None]
  - ATTENTION DEFICIT/HYPERACTIVITY DISORDER [None]
  - AUTISTIC DISORDER [None]
  - DECREASED APPETITE [None]
  - DIARRHOEA [None]
  - HYPERACUSIS [None]
